FAERS Safety Report 8129378-2 (Version None)
Quarter: 2012Q1

REPORT INFORMATION
  Report Type: 
  Country: None (occurrence: None)
  Receive Date: 20120210
  Receipt Date: 20120131
  Transmission Date: 20120608
  Serious: Yes (Other)
  Sender: FDA-Public Use
  Company Number: JP-COVIDIEN/TYCO HEALTHCARE/MALLINCKRODT-T201200552

PATIENT
  Age: 20 Year
  Sex: Male

DRUGS (1)
  1. PENNSAID [Suspect]
     Dosage: UNK

REACTIONS (2)
  - LIVER DISORDER [None]
  - AUTOIMMUNE HEPATITIS [None]
